FAERS Safety Report 10882728 (Version 3)
Quarter: 2015Q4

REPORT INFORMATION
  Report Type: Spontaneous
  Country: US (occurrence: US)
  Receive Date: 20150303
  Receipt Date: 20151009
  Transmission Date: 20160304
  Serious: No
  Sender: FDA-Public Use
  Company Number: US-GLAXOSMITHKLINE-US2015015517

PATIENT
  Sex: Male

DRUGS (4)
  1. MUPIROCIN. [Suspect]
     Active Substance: MUPIROCIN
     Indication: CELLULITIS
     Dosage: UNK
  2. BACTROBAN [Suspect]
     Active Substance: MUPIROCIN\MUPIROCIN CALCIUM
     Indication: PRODUCT USED FOR UNKNOWN INDICATION
     Dosage: UNK
  3. MUPIROCIN CREAM [Suspect]
     Active Substance: MUPIROCIN
     Indication: INFECTION
     Dosage: UNK
     Route: 061
     Dates: start: 201505
  4. MUPIROCIN CREAM [Suspect]
     Active Substance: MUPIROCIN
     Indication: INFECTION PROPHYLAXIS

REACTIONS (4)
  - Drug ineffective [Unknown]
  - Pain in extremity [Recovered/Resolved]
  - Drug hypersensitivity [Unknown]
  - Infection [Unknown]
